FAERS Safety Report 6750421-7 (Version None)
Quarter: 2010Q2

REPORT INFORMATION
  Report Type: 
  Country: None (occurrence: None)
  Receive Date: 20100601
  Receipt Date: 20100519
  Transmission Date: 20101027
  Serious: Yes (Life-Threatening)
  Sender: FDA-Public Use
  Company Number: CA-ELI_LILLY_AND_COMPANY-CA201005005465

PATIENT
  Age: 27 Year
  Sex: Male
  Weight: 81.633 kg

DRUGS (1)
  1. ZYPREXA [Suspect]
     Indication: SCHIZOPHRENIA
     Dosage: 10 MG, DAILY (1/D)
     Route: 048
     Dates: start: 19990101

REACTIONS (8)
  - DRUG DOSE OMISSION [None]
  - FEELING HOT [None]
  - HYPERSENSITIVITY [None]
  - INSOMNIA [None]
  - MALAISE [None]
  - PYREXIA [None]
  - TREMOR [None]
  - WITHDRAWAL SYNDROME [None]
